FAERS Safety Report 21985994 (Version 1)
Quarter: 2023Q1

REPORT INFORMATION
  Report Type: Spontaneous
  Country: US (occurrence: None)
  Receive Date: 20230211
  Receipt Date: 20230211
  Transmission Date: 20230418
  Serious: Yes (Life-Threatening, Hospitalization, Other)
  Sender: FDA-Public Use
  Company Number: None

PATIENT
  Age: 67 Year
  Sex: Female

DRUGS (3)
  1. REPATHA [Suspect]
     Active Substance: EVOLOCUMAB
     Indication: Blood cholesterol increased
     Dosage: FREQUENCY : EVERY OTHER WEEK;?
     Route: 058
     Dates: start: 20210121, end: 20220330
  2. NP THYROID [Concomitant]
     Active Substance: LEVOTHYROXINE\LIOTHYRONINE
  3. candessaryeen [Concomitant]

REACTIONS (8)
  - Haemoglobin decreased [None]
  - Dizziness [None]
  - Heart rate increased [None]
  - Nausea [None]
  - Cognitive disorder [None]
  - Balance disorder [None]
  - Dyspnoea [None]
  - Fall [None]

NARRATIVE: CASE EVENT DATE: 20210522
